FAERS Safety Report 19931505 (Version 2)
Quarter: 2021Q4

REPORT INFORMATION
  Report Type: Spontaneous
  Country: BR (occurrence: BR)
  Receive Date: 20211007
  Receipt Date: 20211011
  Transmission Date: 20220303
  Serious: Yes (Death)
  Sender: FDA-Public Use
  Company Number: BR-CELGENE-BRA-20211001476

PATIENT
  Age: 93 Year
  Sex: Male
  Weight: 48 kg

DRUGS (1)
  1. AZACITIDINE [Suspect]
     Active Substance: AZACITIDINE
     Indication: Leukaemia
     Dosage: ONCE A DAY FOR 7 DAYS WITHIN 4 WEEK
     Route: 058
     Dates: end: 202102

REACTIONS (1)
  - Leukaemia [Fatal]

NARRATIVE: CASE EVENT DATE: 20210608
